FAERS Safety Report 16049646 (Version 5)
Quarter: 2021Q4

REPORT INFORMATION
  Report Type: Report from Study
  Country: JP (occurrence: JP)
  Receive Date: 20190307
  Receipt Date: 20211021
  Transmission Date: 20220303
  Serious: Yes (Death)
  Sender: FDA-Public Use
  Company Number: JP-BAUSCH-BL-2019-006955

PATIENT
  Age: 48 Year
  Sex: Female
  Weight: 42 kg

DRUGS (35)
  1. TETRABENAZINE [Suspect]
     Active Substance: TETRABENAZINE
     Indication: Huntington^s disease
     Dates: start: 20140530, end: 20140703
  2. TETRABENAZINE [Suspect]
     Active Substance: TETRABENAZINE
     Dosage: INCREASED TO 25 MG/DAY DUE TO INADEQUATE DRUG EFFECT
     Route: 048
     Dates: start: 20140704, end: 20140825
  3. TETRABENAZINE [Suspect]
     Active Substance: TETRABENAZINE
     Route: 048
     Dates: start: 20140826, end: 20140925
  4. TETRABENAZINE [Suspect]
     Active Substance: TETRABENAZINE
     Route: 048
     Dates: start: 20140926, end: 20141002
  5. TETRABENAZINE [Suspect]
     Active Substance: TETRABENAZINE
     Route: 048
     Dates: start: 20141003, end: 20141009
  6. TETRABENAZINE [Suspect]
     Active Substance: TETRABENAZINE
     Route: 048
     Dates: start: 20141010, end: 20141218
  7. TETRABENAZINE [Suspect]
     Active Substance: TETRABENAZINE
     Route: 048
     Dates: start: 20141219, end: 20150106
  8. TETRABENAZINE [Suspect]
     Active Substance: TETRABENAZINE
     Route: 048
     Dates: start: 20150107, end: 20150806
  9. TETRABENAZINE [Suspect]
     Active Substance: TETRABENAZINE
     Route: 048
     Dates: start: 20150807, end: 20150813
  10. TETRABENAZINE [Suspect]
     Active Substance: TETRABENAZINE
     Dosage: TETRABENAZINE WAS REDUCED TO 87.5 MG/DAY DUE TO THE EVENT.
     Route: 048
     Dates: start: 20150814, end: 20150820
  11. TETRABENAZINE [Suspect]
     Active Substance: TETRABENAZINE
     Dosage: TETRABENAZINE WAS REDUCED TO 75 MG/DAY DUE TO THE EVENT.
     Route: 048
     Dates: start: 20150821, end: 20150827
  12. TETRABENAZINE [Suspect]
     Active Substance: TETRABENAZINE
     Dosage: TETRABENAZINE WAS REDUCED TO 62.5 MG/DAY DUE TO THE EVENT.
     Route: 048
     Dates: start: 20150828, end: 20150903
  13. TETRABENAZINE [Suspect]
     Active Substance: TETRABENAZINE
     Dosage: TETRABENAZINE WAS REDUCED TO 50 MG/DAY DUE TO THE EVENT.
     Route: 048
     Dates: start: 20150904, end: 20150910
  14. TETRABENAZINE [Suspect]
     Active Substance: TETRABENAZINE
     Dosage: TETRABENAZINE WAS REDUCED TO 37.5 MG/DAY DUE TO THE EVENT.
     Route: 048
     Dates: start: 20150911, end: 20150917
  15. TETRABENAZINE [Suspect]
     Active Substance: TETRABENAZINE
     Dosage: TETRABENAZINE WAS INCREASED TO 87.5 MG/DAY DUE TO INADEQUATE DRUG EFFECT.
     Route: 048
     Dates: start: 20141209, end: 20150106
  16. RISPERDAL [Concomitant]
     Active Substance: RISPERIDONE
     Indication: Product used for unknown indication
     Route: 048
     Dates: start: 20130816, end: 20150115
  17. FLUNITRAZEPAM [Concomitant]
     Active Substance: FLUNITRAZEPAM
     Indication: Product used for unknown indication
     Route: 048
     Dates: start: 20150604
  18. FLUNITRAZEPAM [Concomitant]
     Active Substance: FLUNITRAZEPAM
     Route: 048
     Dates: start: 20150605, end: 20150730
  19. DISTIGMINE BROMIDE [Concomitant]
     Active Substance: DISTIGMINE BROMIDE
     Indication: Product used for unknown indication
     Route: 048
     Dates: start: 20150716
  20. DISTIGMINE BROMIDE [Concomitant]
     Active Substance: DISTIGMINE BROMIDE
     Route: 048
     Dates: start: 20150717, end: 20150730
  21. MAGNESIUM OXIDE [Concomitant]
     Active Substance: MAGNESIUM OXIDE
     Indication: Constipation
     Route: 048
     Dates: start: 20130816, end: 20150730
  22. VALPROATE SODIUM [Concomitant]
     Active Substance: VALPROATE SODIUM
     Indication: Product used for unknown indication
     Route: 048
     Dates: start: 20130816, end: 20150716
  23. VALPROATE SODIUM [Concomitant]
     Active Substance: VALPROATE SODIUM
     Route: 048
     Dates: start: 20150717, end: 20150730
  24. VALPROATE SODIUM [Concomitant]
     Active Substance: VALPROATE SODIUM
     Route: 048
     Dates: start: 20150731, end: 20150806
  25. TRIAZOLAM [Concomitant]
     Active Substance: TRIAZOLAM
     Indication: Product used for unknown indication
     Route: 048
     Dates: start: 20130816, end: 20150716
  26. TRIAZOLAM [Concomitant]
     Active Substance: TRIAZOLAM
     Route: 048
     Dates: start: 20150717, end: 20150813
  27. TRIAZOLAM [Concomitant]
     Active Substance: TRIAZOLAM
     Route: 048
     Dates: start: 20150814, end: 20150827
  28. TRIAZOLAM [Concomitant]
     Active Substance: TRIAZOLAM
     Route: 048
     Dates: start: 20150828, end: 20150917
  29. ROZEREM [Concomitant]
     Active Substance: RAMELTEON
     Indication: Product used for unknown indication
     Route: 048
     Dates: start: 20130816, end: 20150917
  30. RISPERIDONE OD [Concomitant]
     Indication: Product used for unknown indication
     Route: 048
     Dates: start: 20150116, end: 20150618
  31. RISPERIDONE OD [Concomitant]
     Route: 048
     Dates: start: 20150619, end: 20150716
  32. RISPERIDONE OD [Concomitant]
     Route: 048
     Dates: start: 20150717, end: 20150730
  33. HALOPERIDOL [Concomitant]
     Active Substance: HALOPERIDOL
     Indication: Product used for unknown indication
     Route: 065
     Dates: start: 20150630, end: 20150706
  34. HALOPERIDOL [Concomitant]
     Active Substance: HALOPERIDOL
     Route: 065
     Dates: start: 20150707, end: 20150713
  35. HALOPERIDOL [Concomitant]
     Active Substance: HALOPERIDOL
     Route: 065
     Dates: start: 20150714, end: 20151017

REACTIONS (10)
  - Hypotension [Fatal]
  - Dysphagia [Fatal]
  - Acne [Recovered/Resolved]
  - Folliculitis [Recovered/Resolved]
  - Productive cough [Not Recovered/Not Resolved]
  - Productive cough [Not Recovered/Not Resolved]
  - Pneumonia aspiration [Recovered/Resolved]
  - Pyrexia [Recovered/Resolved]
  - Pyrexia [Recovered/Resolved]
  - Pyrexia [Recovered/Resolved]

NARRATIVE: CASE EVENT DATE: 20140703
